FAERS Safety Report 4540473-7 (Version None)
Quarter: 2004Q4

REPORT INFORMATION
  Report Type: 
  Country: None (occurrence: None)
  Receive Date: 20041229
  Receipt Date: 20040719
  Transmission Date: 20050328
  Serious: Yes (Congenital Anomaly)
  Sender: FDA-Public Use
  Company Number: US-BRISTOL-MYERS SQUIBB COMPANY-12645404

PATIENT
  Sex: Male
  Weight: 4 kg

DRUGS (5)
  1. SUSTIVA [Suspect]
     Route: 064
     Dates: end: 20040313
  2. VIREAD [Suspect]
     Dosage: ONGOING AT CONCEPTION
     Route: 064
     Dates: end: 20040729
  3. EPIVIR [Suspect]
     Dosage: ONGOING AT CONCEPTION
     Route: 064
     Dates: end: 20040219
  4. VIRAMUNE [Suspect]
     Route: 064
     Dates: start: 20031219, end: 20040729
  5. COMBIVIR [Suspect]
     Route: 064
     Dates: start: 20040220, end: 20040729

REACTIONS (2)
  - MENINGOMYELOCELE [None]
  - PREGNANCY [None]
